FAERS Safety Report 5922353-5 (Version None)
Quarter: 2008Q4

REPORT INFORMATION
  Report Type: 
  Country: None (occurrence: None)
  Receive Date: 20081017
  Receipt Date: 20081009
  Transmission Date: 20090506
  Serious: Yes (Death)
  Sender: FDA-Public Use
  Company Number: GB-BAUSCH-2008BL004350

PATIENT
  Age: 21 Year
  Sex: Female

DRUGS (8)
  1. PREDNISOLONE [Suspect]
     Indication: DRUG USE FOR UNKNOWN INDICATION
     Route: 048
  2. CYCLOSPORINE [Suspect]
     Indication: DRUG USE FOR UNKNOWN INDICATION
  3. ENBREL [Suspect]
     Indication: DRUG USE FOR UNKNOWN INDICATION
  4. METHOTREXATE [Suspect]
     Indication: DRUG USE FOR UNKNOWN INDICATION
     Route: 058
  5. METHOTREXATE [Suspect]
     Route: 058
  6. ACITRETIN [Concomitant]
  7. RIFAMPICIN [Concomitant]
     Route: 042
  8. VANCOMYCIN HYDROCHLORIDE [Concomitant]
     Route: 042

REACTIONS (18)
  - ABDOMINAL PAIN [None]
  - ARTHRITIS [None]
  - ARTHRITIS BACTERIAL [None]
  - CONDITION AGGRAVATED [None]
  - DISSEMINATED INTRAVASCULAR COAGULATION [None]
  - HAEMOGLOBIN DECREASED [None]
  - HEADACHE [None]
  - HYPOALBUMINAEMIA [None]
  - HYPOTENSION [None]
  - MALAISE [None]
  - NAUSEA [None]
  - NORMOCHROMIC NORMOCYTIC ANAEMIA [None]
  - ORGANISING PNEUMONIA [None]
  - PUSTULAR PSORIASIS [None]
  - RECTAL HAEMORRHAGE [None]
  - STAPHYLOCOCCAL INFECTION [None]
  - SYNOVITIS [None]
  - TUBERCULOSIS [None]
